FAERS Safety Report 6130308-3 (Version None)
Quarter: 2009Q1

REPORT INFORMATION
  Report Type: 
  Country: None (occurrence: None)
  Receive Date: 20090324
  Receipt Date: 20090312
  Transmission Date: 20090719
  Serious: Yes (Other)
  Sender: FDA-Public Use
  Company Number: US-ELI_LILLY_AND_COMPANY-US200903004258

PATIENT
  Sex: Female

DRUGS (3)
  1. CYMBALTA [Suspect]
     Indication: BIPOLAR II DISORDER
     Dosage: 120 MG, UNK
     Route: 048
     Dates: start: 20051001, end: 20060701
  2. SEROQUEL [Concomitant]
     Indication: BIPOLAR I DISORDER
     Dosage: 400 MG, UNK
     Dates: start: 20051001
  3. CLONAZEPAM [Concomitant]
     Indication: BIPOLAR I DISORDER
     Dosage: 1 MG, UNK
     Route: 048
     Dates: start: 20050801

REACTIONS (1)
  - TOXIC EPIDERMAL NECROLYSIS [None]
